FAERS Safety Report 10184279 (Version 3)
Quarter: 2014Q2

REPORT INFORMATION
  Report Type: Report from Study
  Country: JO (occurrence: JO)
  Receive Date: 20140520
  Receipt Date: 20140623
  Transmission Date: 20141212
  Serious: Yes (Hospitalization)
  Sender: FDA-Public Use
  Company Number: JO-009507513-1402JOR008104

PATIENT
  Age: 44 Year
  Sex: Female
  Weight: 83 kg

DRUGS (15)
  1. BLINDED VARICELLA-ZOSTER VIRUS VACCINE INACTIVATED (OKA/MERCK) [Suspect]
     Indication: PROPHYLAXIS
     Route: 058
     Dates: start: 20130722, end: 20130722
  2. BLINDED VARICELLA-ZOSTER VIRUS VACCINE INACTIVATED (OKA/MERCK) [Suspect]
     Route: 058
     Dates: start: 20130409, end: 20130409
  3. BLINDED VARICELLA-ZOSTER VIRUS VACCINE INACTIVATED (OKA/MERCK) [Suspect]
     Route: 058
     Dates: start: 20130518, end: 20130518
  4. BLINDED VARICELLA-ZOSTER VIRUS VACCINE INACTIVATED (OKA/MERCK) [Suspect]
     Route: 058
     Dates: start: 20130626, end: 20130626
  5. TRASTUZUMAB [Suspect]
     Indication: ADJUVANT THERAPY
     Dosage: 672 MG, Q3W
     Route: 042
     Dates: start: 20130901
  6. TRASTUZUMAB [Suspect]
     Indication: BREAST CANCER
  7. OCTINOXATE (+) OCTISALATE (+) ZINC OXIDE [Concomitant]
     Indication: ROSACEA
     Dosage: ROUTE OF ADMIN: DERMAL
     Route: 061
     Dates: start: 20130413
  8. METOCLOPRAMIDE [Concomitant]
     Indication: PROPHYLACTIC CHEMOTHERAPY
     Dosage: 10 MG, QID
     Route: 048
     Dates: start: 20130414
  9. LANZOTEC [Concomitant]
     Indication: PROPHYLACTIC CHEMOTHERAPY
     Dosage: 15 MG, QD
     Route: 048
     Dates: start: 20130414
  10. PROTOPIC [Concomitant]
     Indication: ROSACEA
     Dosage: UNK, QD, DERMAL
     Route: 061
     Dates: start: 20130528
  11. FUSIDIC ACID [Concomitant]
     Indication: ROSACEA
     Dosage: UNK, BID
     Route: 061
     Dates: start: 20130528
  12. FUSIDIC ACID [Concomitant]
     Indication: INFECTION
  13. DOXYCYCLINE [Concomitant]
     Indication: ROSACEA
     Dosage: 100 MG, QD
     Route: 048
     Dates: start: 20130528
  14. DOXYCYCLINE [Concomitant]
     Indication: INFECTION
  15. DEXAMETHASONE [Concomitant]
     Indication: PROPHYLACTIC CHEMOTHERAPY
     Dosage: 8 MG, QD
     Route: 048
     Dates: start: 20130415

REACTIONS (1)
  - Cardiac failure [Recovering/Resolving]
